FAERS Safety Report 14487186 (Version 3)
Quarter: 2018Q1

REPORT INFORMATION
  Report Type: Spontaneous
  Country: US (occurrence: US)
  Receive Date: 20180205
  Receipt Date: 20180326
  Transmission Date: 20180509
  Serious: Yes (Death, Life-Threatening, Hospitalization, Other)
  Sender: FDA-Public Use
  Company Number: US-PFIZER INC-2018047143

PATIENT
  Age: 75 Year
  Sex: Male

DRUGS (1)
  1. REVATIO [Suspect]
     Active Substance: SILDENAFIL CITRATE
     Indication: LUNG DISORDER
     Dosage: 40 MG, 3X/DAY (20 MG - 2 X 3XDAY)
     Dates: start: 2017

REACTIONS (5)
  - Lung disorder [Unknown]
  - Pulmonary haemorrhage [Unknown]
  - Pulmonary hypertension [Fatal]
  - Cardiac failure congestive [Fatal]
  - Product use in unapproved indication [Unknown]

NARRATIVE: CASE EVENT DATE: 2017
